FAERS Safety Report 5601547-2 (Version None)
Quarter: 2008Q1

REPORT INFORMATION
  Report Type: 
  Country: None (occurrence: None)
  Receive Date: 20080124
  Receipt Date: 20080121
  Transmission Date: 20080703
  Serious: Yes (Other)
  Sender: FDA-Public Use
  Company Number: AU-TEVA-165140ISR

PATIENT
  Sex: Female

DRUGS (2)
  1. COPAXONE [Suspect]
  2. FLUVOXAMINE MALEATE [Concomitant]

REACTIONS (1)
  - SKIN NECROSIS [None]
